FAERS Safety Report 5984334-5 (Version None)
Quarter: 2008Q4

REPORT INFORMATION
  Report Type: 
  Country: None (occurrence: None)
  Receive Date: 20081208
  Receipt Date: 20081128
  Transmission Date: 20090506
  Serious: Yes (Other)
  Sender: FDA-Public Use
  Company Number: PHHY2008JP29904

PATIENT
  Age: 70 Year
  Sex: Female

DRUGS (7)
  1. STARSIS [Suspect]
     Indication: DIABETES MELLITUS
     Dosage: 270 MG/DAY
     Route: 048
     Dates: start: 20081020, end: 20081114
  2. RABEPRAZOLE SODIUM [Suspect]
     Dosage: 10 MG
     Route: 048
  3. ASPIRIN [Concomitant]
     Dosage: 100 MG
  4. ARTIST [Concomitant]
     Dosage: 2.5 MG
  5. SIGMART [Concomitant]
     Dosage: 15 MG
  6. GASMOTIN [Concomitant]
     Dosage: 15 MG
  7. DIAZEPAM [Concomitant]
     Dosage: 4 MG

REACTIONS (2)
  - INAPPROPRIATE ANTIDIURETIC HORMONE SECRETION [None]
  - RASH [None]
